FAERS Safety Report 9602778 (Version 4)
Quarter: 2014Q3

REPORT INFORMATION
  Report Type: Spontaneous
  Country: US (occurrence: US)
  Receive Date: 20131007
  Receipt Date: 20140819
  Transmission Date: 20150326
  Serious: Yes (Hospitalization, Other)
  Sender: FDA-Public Use
  Company Number: US-BAYER-2013-119957

PATIENT
  Age: 44 Year
  Sex: Female
  Weight: 89.8 kg

DRUGS (2)
  1. BAYER LOW DOSE [Suspect]
     Active Substance: ASPIRIN
     Dosage: 8 MG, UNK
     Route: 048
  2. MIRENA [Suspect]
     Active Substance: LEVONORGESTREL
     Indication: CONTRACEPTION
     Dosage: 20 MCG/24HR, CONT
     Route: 015
     Dates: start: 20110708, end: 20130919

REACTIONS (11)
  - Pregnancy with contraceptive device [Not Recovered/Not Resolved]
  - Fatigue [Not Recovered/Not Resolved]
  - Amenorrhoea [None]
  - Drug ineffective [None]
  - Liver function test abnormal [None]
  - Breast tenderness [Not Recovered/Not Resolved]
  - Blood pressure increased [None]
  - Caesarean section [None]
  - Nausea [Not Recovered/Not Resolved]
  - Haemorrhage in pregnancy [None]
  - Maternal exposure during pregnancy [None]

NARRATIVE: CASE EVENT DATE: 201307
